FAERS Safety Report 5167279-2 (Version None)
Quarter: 2006Q4

REPORT INFORMATION
  Report Type: 
  Country: None (occurrence: None)
  Receive Date: 20061124
  Receipt Date: 20061120
  Transmission Date: 20070319
  Serious: Yes (Other)
  Sender: FDA-Public Use
  Company Number: 2006144727

PATIENT
  Age: 56 Year
  Sex: Male
  Weight: 101.6057 kg

DRUGS (15)
  1. ZOLOFT [Suspect]
     Indication: ANXIETY
     Dosage: 25 MG (25 MG, 1 IN 1 D);
  2. SERTRALINE [Suspect]
     Indication: ANXIETY
     Dosage: 25 MG (25 MG, 1 IN 1 D)
  3. ANAPRIL (ENALAPRIL MALEATE) [Concomitant]
  4. TAMSULOSIN HCL [Concomitant]
  5. HYDROCHLOROTHIAZIDE [Concomitant]
  6. LASIX [Concomitant]
  7. NORVASAC (AMLODIPINE) [Concomitant]
  8. PHOSLO [Concomitant]
  9. REGLAN [Concomitant]
  10. TUMS (CALCIUM CARBONATE) [Concomitant]
  11. ZYRTEC [Concomitant]
  12. CEPHALEXIN [Concomitant]
  13. CIALIS [Concomitant]
  14. AMBIEN [Concomitant]
  15. EPOETIN (ERYTHROPOIETIN) [Concomitant]

REACTIONS (6)
  - ANXIETY [None]
  - BLOOD CALCIUM DECREASED [None]
  - BLOOD CREATINE INCREASED [None]
  - DRUG INEFFECTIVE [None]
  - HYPERKALAEMIA [None]
  - PHARMACEUTICAL PRODUCT COMPLAINT [None]
